FAERS Safety Report 24286656 (Version 1)
Quarter: 2024Q3

REPORT INFORMATION
  Report Type: Spontaneous
  Country: AR (occurrence: AR)
  Receive Date: 20240905
  Receipt Date: 20240905
  Transmission Date: 20241017
  Serious: Yes (Hospitalization)
  Sender: GLAXOSMITHKLINE
  Company Number: AR-GLAXOSMITHKLINE-AR2023AMR078395

PATIENT

DRUGS (2)
  1. NUCALA [Suspect]
     Active Substance: MEPOLIZUMAB
     Indication: Asthma
     Dosage: 100 MG
     Dates: start: 20230208, end: 20230803
  2. NUCALA [Suspect]
     Active Substance: MEPOLIZUMAB
     Dosage: 100 MG
     Dates: start: 20240809

REACTIONS (10)
  - Hospitalisation [Unknown]
  - Bronchitis [Not Recovered/Not Resolved]
  - Asthma [Unknown]
  - Choking sensation [Recovered/Resolved]
  - Peripheral swelling [Recovering/Resolving]
  - Laryngitis [Unknown]
  - Contusion [Not Recovered/Not Resolved]
  - Disease recurrence [Unknown]
  - Pharyngitis [Not Recovered/Not Resolved]
  - Rhinorrhoea [Unknown]

NARRATIVE: CASE EVENT DATE: 20230401
